FAERS Safety Report 8247239-5 (Version None)
Quarter: 2012Q1

REPORT INFORMATION
  Report Type: 
  Country: None (occurrence: None)
  Receive Date: 20120330
  Receipt Date: 20120321
  Transmission Date: 20120608
  Serious: Yes (Other)
  Sender: FDA-Public Use
  Company Number: US-ROCHE-1052205

PATIENT

DRUGS (4)
  1. BONIVA [Suspect]
     Indication: OSTEOPENIA
  2. FOSAMAX [Suspect]
     Indication: OSTEOPENIA
  3. FOSAMAX [Suspect]
     Indication: OSTEOPOROSIS
     Dates: start: 20060101, end: 20100101
  4. BONIVA [Suspect]
     Indication: OSTEOPOROSIS
     Dates: start: 20040101, end: 20060101

REACTIONS (3)
  - FEMUR FRACTURE [None]
  - STRESS FRACTURE [None]
  - ANXIETY [None]
